FAERS Safety Report 23361893 (Version 2)
Quarter: 2024Q1

REPORT INFORMATION
  Report Type: Report from Study
  Country: AR (occurrence: AR)
  Receive Date: 20240103
  Receipt Date: 20240221
  Transmission Date: 20240410
  Serious: Yes (Hospitalization, Other)
  Sender: FDA-Public Use
  Company Number: AR-002147023-NVSC2023AR277175

PATIENT
  Age: 54 Year
  Sex: Female

DRUGS (2)
  1. COSENTYX [Suspect]
     Active Substance: SECUKINUMAB
     Indication: Psoriatic arthropathy
     Dosage: 300 MG, QMO
     Route: 065
     Dates: start: 202112, end: 202312
  2. PREDNISONE [Concomitant]
     Active Substance: PREDNISONE
     Indication: Product used for unknown indication
     Dosage: 5 MG, QD
     Route: 065

REACTIONS (10)
  - Pulmonary mass [Recovering/Resolving]
  - Sepsis [Recovering/Resolving]
  - Pleural effusion [Recovering/Resolving]
  - Pseudomonas infection [Recovering/Resolving]
  - Ill-defined disorder [Recovering/Resolving]
  - Oedema peripheral [Unknown]
  - Pyrexia [Unknown]
  - Pain [Unknown]
  - Erythema [Unknown]
  - Muscle rigidity [Unknown]

NARRATIVE: CASE EVENT DATE: 20231219
